FAERS Safety Report 10657902 (Version 1)
Quarter: 2014Q4

REPORT INFORMATION
  Report Type: Spontaneous
  Country: US (occurrence: None)
  Receive Date: 20141215
  Receipt Date: 20141215
  Transmission Date: 20150529
  Serious: Yes (Hospitalization, Other)
  Sender: FDA-Public Use
  Company Number: RAP-0253-2014

PATIENT
  Age: 9 Year
  Sex: Female

DRUGS (1)
  1. PROCYSBI DELAYED-RELEASE [Suspect]
     Active Substance: CYSTEAMINE BITARTRATE
     Indication: CYSTINOSIS
     Dosage: 1800 MG (900 MG, 1 IN 12 HR), GASTROENTERAL USE
     Dates: start: 201409, end: 20141117

REACTIONS (8)
  - Anger [None]
  - Amino acid level increased [None]
  - Incorrect dose administered [None]
  - Psychotic disorder [None]
  - Mood altered [None]
  - Irritability [None]
  - Feeling abnormal [None]
  - Abnormal behaviour [None]

NARRATIVE: CASE EVENT DATE: 201410
